FAERS Safety Report 17011524 (Version 2)
Quarter: 2019Q4

REPORT INFORMATION
  Report Type: Spontaneous
  Country: US (occurrence: US)
  Receive Date: 20191108
  Receipt Date: 20191115
  Transmission Date: 20200122
  Serious: Yes (Other)
  Sender: FDA-Public Use
  Company Number: US-NOVOPROD-684803

PATIENT
  Age: 56 Year
  Sex: Female

DRUGS (2)
  1. TRESIBA [Suspect]
     Active Substance: INSULIN DEGLUDEC
     Indication: PRODUCT USED FOR UNKNOWN INDICATION
     Dosage: 26 IU (STARTED 2-3 YEARS AGO)
     Route: 058
  2. FIASP [Suspect]
     Active Substance: INSULIN ASPART
     Indication: PRODUCT USED FOR UNKNOWN INDICATION
     Dosage: 3-8 UNITS
     Route: 058
     Dates: start: 201908

REACTIONS (6)
  - Product appearance confusion [Unknown]
  - Accidental overdose [Unknown]
  - Blood glucose decreased [Recovered/Resolved]
  - Wrong product administered [Unknown]
  - Blood glucose fluctuation [Recovered/Resolved]
  - Fatigue [Unknown]

NARRATIVE: CASE EVENT DATE: 2019
